FAERS Safety Report 6554136-X (Version None)
Quarter: 2010Q1

REPORT INFORMATION
  Report Type: 
  Country: None (occurrence: None)
  Receive Date: 20100125
  Receipt Date: 20100125
  Transmission Date: 20100710
  Serious: Yes (Other)
  Sender: FDA-Public Use
  Company Number: None

PATIENT
  Age: 23 Year
  Sex: Female
  Weight: 52.1637 kg

DRUGS (1)
  1. SIMPLY SLEEP 25 MG TYLENOL [Suspect]
     Indication: INITIAL INSOMNIA
     Dosage: 2 AT BEDTIME 3 TO 4 TIMES A WEE PO
     Route: 048
     Dates: start: 20100114, end: 20100122

REACTIONS (3)
  - ABDOMINAL PAIN UPPER [None]
  - FLATULENCE [None]
  - NAUSEA [None]
